FAERS Safety Report 8261554-0 (Version None)
Quarter: 2012Q2

REPORT INFORMATION
  Report Type: 
  Country: None (occurrence: None)
  Receive Date: 20120405
  Receipt Date: 20120327
  Transmission Date: 20120825
  Serious: Yes (Other)
  Sender: FDA-Public Use
  Company Number: US-BAYER-2011-079245

PATIENT
  Age: 23 Year
  Sex: Female
  Weight: 63.492 kg

DRUGS (4)
  1. YAZ [Suspect]
     Indication: CONTRACEPTION
     Dosage: UNK
     Dates: start: 20070401, end: 20100601
  2. ZOFRAN [Concomitant]
     Indication: NAUSEA
     Dosage: 4 MG, AS NEEDED
     Route: 048
  3. METOCLOPRAMIDE [Concomitant]
     Indication: ABDOMINAL PAIN UPPER
     Dosage: UNK
     Dates: start: 20080327
  4. REGLAN [Concomitant]
     Dosage: 10 MG, 1 TABLET 30 MINUTES BEFORE MEALS THEN 1 TABLET AT BEDTIME
     Route: 048

REACTIONS (7)
  - INJURY [None]
  - GALLBLADDER INJURY [None]
  - ANXIETY [None]
  - PAIN [None]
  - SCAR [None]
  - EMOTIONAL DISTRESS [None]
  - BILIARY DYSKINESIA [None]
